FAERS Safety Report 6525856-8 (Version None)
Quarter: 2010Q1

REPORT INFORMATION
  Report Type: 
  Country: None (occurrence: None)
  Receive Date: 20100104
  Receipt Date: 20091228
  Transmission Date: 20100710
  Serious: Yes (Hospitalization)
  Sender: FDA-Public Use
  Company Number: B0621150A

PATIENT
  Sex: Male

DRUGS (5)
  1. ZELITREX [Suspect]
     Indication: DRUG USE FOR UNKNOWN INDICATION
     Dosage: 500MG TWICE PER DAY
     Route: 048
     Dates: start: 20090501, end: 20090712
  2. FLUDARA [Suspect]
     Indication: LYMPHOMA
     Route: 065
     Dates: start: 20090101, end: 20090624
  3. MABTHERA [Suspect]
     Indication: LYMPHOMA
     Route: 042
     Dates: start: 20090624, end: 20090624
  4. BACTRIM DS [Suspect]
     Indication: DRUG USE FOR UNKNOWN INDICATION
     Route: 048
     Dates: start: 20090501, end: 20090712
  5. GRANOCYTE [Concomitant]
     Route: 065

REACTIONS (12)
  - BLOOD ALKALINE PHOSPHATASE INCREASED [None]
  - C-REACTIVE PROTEIN INCREASED [None]
  - CRYPTOSPORIDIOSIS INFECTION [None]
  - DEHYDRATION [None]
  - DIARRHOEA [None]
  - GROIN PAIN [None]
  - HYPOTHERMIA [None]
  - HYPOVOLAEMIC SHOCK [None]
  - PRURITUS [None]
  - PYREXIA [None]
  - RASH MACULO-PAPULAR [None]
  - SEPSIS [None]
